FAERS Safety Report 19417308 (Version 1)
Quarter: 2021Q2

REPORT INFORMATION
  Report Type: Spontaneous
  Country: GB (occurrence: GB)
  Receive Date: 20210614
  Receipt Date: 20210614
  Transmission Date: 20210717
  Serious: Yes (Other)
  Sender: FDA-Public Use
  Company Number: GB-BAXTER-2021BAX015138

PATIENT
  Sex: Female

DRUGS (20)
  1. CYCLOPHOSPHAMIDE INJECTION 1G [Suspect]
     Active Substance: CYCLOPHOSPHAMIDE
     Indication: DIFFUSE LARGE B-CELL LYMPHOMA RECURRENT
     Dosage: OFATUMUMAB + PMITCEBO: 2 COURSES
     Route: 065
     Dates: start: 2016
  2. BLEOMYCIN [Suspect]
     Active Substance: BLEOMYCIN SULFATE
     Indication: DIFFUSE LARGE B-CELL LYMPHOMA RECURRENT
     Dosage: DOSE RE?INTRODUCED
     Route: 065
     Dates: start: 2021
  3. CYCLOPHOSPHAMIDE INJECTION 1G [Suspect]
     Active Substance: CYCLOPHOSPHAMIDE
     Indication: FOLLICULAR LYMPHOMA STAGE III
     Dosage: RCHOP: 8 COURSES
     Route: 065
     Dates: start: 2006
  4. ONKOTRONE INJECTION 2 MG/ML CONCENTRATE FOR SOLUTION FOR INFUSION [Suspect]
     Active Substance: MITOXANTRONE HYDROCHLORIDE
     Indication: DIFFUSE LARGE B-CELL LYMPHOMA RECURRENT
     Dosage: DOSE RE?INTRODUCED
     Route: 065
     Dates: start: 2021
  5. ETOPOSIDE. [Suspect]
     Active Substance: ETOPOSIDE
     Indication: DIFFUSE LARGE B-CELL LYMPHOMA RECURRENT
     Dosage: DOSE RE?INTRODUCED
     Route: 065
     Dates: start: 2021
  6. GEMCITABINE. [Suspect]
     Active Substance: GEMCITABINE
     Indication: DIFFUSE LARGE B-CELL LYMPHOMA RECURRENT
     Dosage: 2 COURSES
     Route: 065
  7. RITUXIMAB. [Suspect]
     Active Substance: RITUXIMAB
     Indication: FOLLICULAR LYMPHOMA STAGE III
     Dosage: RCHOP: 8 COURSES
     Route: 065
     Dates: start: 2006
  8. ONCOVIN [Suspect]
     Active Substance: VINCRISTINE SULFATE
     Indication: FOLLICULAR LYMPHOMA STAGE III
     Dosage: RCHOP: 8 COURSES
     Route: 065
     Dates: start: 2006
  9. BLEOMYCIN [Suspect]
     Active Substance: BLEOMYCIN SULFATE
     Indication: DIFFUSE LARGE B-CELL LYMPHOMA RECURRENT
     Dosage: OFATUMUMAB + PMITCEBO: 2 COURSES
     Route: 065
     Dates: start: 2016
  10. OFATUMUMAB [Suspect]
     Active Substance: OFATUMUMAB
     Indication: DIFFUSE LARGE B-CELL LYMPHOMA RECURRENT
     Dosage: OFATUMUMAB + PMITCEBO: 2 COURSES
     Route: 065
     Dates: start: 2016
  11. OFATUMUMAB [Suspect]
     Active Substance: OFATUMUMAB
     Dosage: 2 COURSES
     Route: 065
  12. ONKOTRONE INJECTION 2 MG/ML CONCENTRATE FOR SOLUTION FOR INFUSION [Suspect]
     Active Substance: MITOXANTRONE HYDROCHLORIDE
     Indication: DIFFUSE LARGE B-CELL LYMPHOMA RECURRENT
     Dosage: OFATUMUMAB + PMITCEBO: 2 COURSES
     Route: 065
     Dates: start: 2016
  13. ONCOVIN [Suspect]
     Active Substance: VINCRISTINE SULFATE
     Indication: DIFFUSE LARGE B-CELL LYMPHOMA RECURRENT
     Dosage: OFATUMUMAB + PMITCEBO: 2 COURSES
     Route: 065
     Dates: start: 2016
  14. PREDNISOLONE. [Suspect]
     Active Substance: PREDNISOLONE
     Indication: FOLLICULAR LYMPHOMA STAGE III
     Dosage: RCHOP: 8 COURSES
     Route: 065
     Dates: start: 2006
  15. PREDNISOLONE. [Suspect]
     Active Substance: PREDNISOLONE
     Dosage: 2 COURSES
     Route: 065
  16. CYCLOPHOSPHAMIDE INJECTION 1G [Suspect]
     Active Substance: CYCLOPHOSPHAMIDE
     Dosage: 2 COURSES
     Route: 065
  17. PREDNISOLONE. [Suspect]
     Active Substance: PREDNISOLONE
     Indication: DIFFUSE LARGE B-CELL LYMPHOMA RECURRENT
     Dosage: OFATUMUMAB + PMITCEBO: 2 COURSES
     Route: 065
     Dates: start: 2016
  18. DOXORUBICIN HYDROCHLORIDE. [Suspect]
     Active Substance: DOXORUBICIN HYDROCHLORIDE
     Indication: FOLLICULAR LYMPHOMA STAGE III
     Dosage: RCHOP: 8 COURSES
     Route: 065
     Dates: start: 2006
  19. ONCOVIN [Suspect]
     Active Substance: VINCRISTINE SULFATE
     Indication: DIFFUSE LARGE B-CELL LYMPHOMA RECURRENT
     Dosage: DOSE RE?INTRODUCED
     Route: 065
     Dates: start: 2021
  20. ETOPOSIDE. [Suspect]
     Active Substance: ETOPOSIDE
     Indication: DIFFUSE LARGE B-CELL LYMPHOMA RECURRENT
     Dosage: OFATUMUMAB + PMITCEBO: 2 COURSES
     Route: 065
     Dates: start: 2016

REACTIONS (3)
  - Diffuse large B-cell lymphoma recurrent [Recovered/Resolved]
  - Diffuse large B-cell lymphoma recurrent [Unknown]
  - Toxicity to various agents [Unknown]

NARRATIVE: CASE EVENT DATE: 2016
